FAERS Safety Report 6856902-X (Version None)
Quarter: 2010Q3

REPORT INFORMATION
  Report Type: 
  Country: None (occurrence: None)
  Receive Date: 20100714
  Receipt Date: 20100629
  Transmission Date: 20110219
  Serious: Yes (Life-Threatening, Other)
  Sender: FDA-Public Use
  Company Number: FRP10000743

PATIENT
  Age: 78 Year
  Sex: Female

DRUGS (1)
  1. ACTONEL [Suspect]
     Indication: OSTEOPOROSIS
     Dosage: 5MG, 1 /DAY, ORAL
     Route: 048
     Dates: start: 20030701, end: 20070801

REACTIONS (5)
  - DEVICE DISLOCATION [None]
  - GASTROINTESTINAL NECROSIS [None]
  - OESOPHAGEAL CARCINOMA [None]
  - OESOPHAGEAL MASS [None]
  - OESOPHAGEAL STENOSIS [None]
